FAERS Safety Report 10099019 (Version 1)
Quarter: 2014Q2

REPORT INFORMATION
  Report Type: Spontaneous
  Country: BR (occurrence: BR)
  Receive Date: 20140423
  Receipt Date: 20140423
  Transmission Date: 20141212
  Serious: Yes (Hospitalization, Other)
  Sender: FDA-Public Use
  Company Number: BR-PFIZER INC-2014110069

PATIENT
  Age: 64 Year
  Sex: Female
  Weight: 75 kg

DRUGS (13)
  1. ATENOLOL [Suspect]
     Indication: HYPERTENSION
     Dosage: 25 MG, UNK
     Route: 048
     Dates: start: 2014, end: 2014
  2. HYDROCHLOROTHIAZIDE [Suspect]
     Indication: HYPERTENSION
     Dosage: 50 MG, DAILY
     Route: 048
     Dates: start: 1996
  3. HYDROCHLOROTHIAZIDE [Suspect]
     Indication: RENAL DISORDER
     Dosage: 25 MG, DAILY
     Route: 048
  4. ATORVASTATIN CALCIUM [Suspect]
     Indication: BLOOD CHOLESTEROL INCREASED
     Dosage: 40 MG, DAILY
     Route: 048
     Dates: end: 201312
  5. OMEPRAZOLE [Suspect]
     Dosage: 40 MG, DAILY
     Route: 048
  6. OMEPRAZOLE [Suspect]
     Dosage: 40 MG, 2X/DAY
     Route: 048
  7. NEXIUM [Suspect]
     Indication: ULCER
     Dosage: 40 MG, DAILY, MUPS
     Route: 048
     Dates: start: 20140408, end: 20140408
  8. NEXIUM [Suspect]
     Indication: HIATUS HERNIA
     Dosage: DAILY
     Route: 048
  9. NEXIUM [Suspect]
     Indication: GASTRITIS
  10. NEXIUM [Suspect]
     Indication: HELICOBACTER INFECTION
  11. DIGEPLUS [Concomitant]
     Indication: DYSPEPSIA
     Dosage: DAILY
     Route: 048
     Dates: start: 201401
  12. GAVISCON [Concomitant]
     Dosage: UNK
     Route: 048
  13. LOSARTAN [Concomitant]
     Indication: HYPERTENSION
     Dosage: 50 MG, UNK
     Route: 048
     Dates: start: 2014, end: 2014

REACTIONS (16)
  - Decreased appetite [Recovered/Resolved]
  - Dysgeusia [Recovered/Resolved]
  - Nausea [Unknown]
  - Abdominal mass [Not Recovered/Not Resolved]
  - Blood pressure increased [Recovered/Resolved]
  - Helicobacter infection [Not Recovered/Not Resolved]
  - Ulcer [Not Recovered/Not Resolved]
  - Hiatus hernia [Not Recovered/Not Resolved]
  - Gastritis [Not Recovered/Not Resolved]
  - Oesophagitis [Not Recovered/Not Resolved]
  - Cold sweat [Unknown]
  - Faeces discoloured [Unknown]
  - Blood cholesterol increased [Not Recovered/Not Resolved]
  - Off label use [Not Recovered/Not Resolved]
  - Drug ineffective [Recovered/Resolved]
  - Intentional product misuse [Not Recovered/Not Resolved]
